FAERS Safety Report 26207700 (Version 1)
Quarter: 2025Q4

REPORT INFORMATION
  Report Type: Spontaneous
  Country: US (occurrence: None)
  Receive Date: 20251229
  Receipt Date: 20251229
  Transmission Date: 20260118
  Serious: Yes (Other)
  Sender: INFORLIFE
  Company Number: US-MLMSERVICE-20251215-PI748794-00150-1

PATIENT
  Age: 36 Year
  Sex: Male

DRUGS (1)
  1. FLUCONAZOLE [Suspect]
     Active Substance: FLUCONAZOLE
     Indication: Rash

REACTIONS (2)
  - Immune-mediated myositis [Unknown]
  - Off label use [Unknown]
